FAERS Safety Report 11349331 (Version 2)
Quarter: 2015Q4

REPORT INFORMATION
  Report Type: Report from Study
  Country: US (occurrence: US)
  Receive Date: 20150807
  Receipt Date: 20151007
  Transmission Date: 20160304
  Serious: Yes (Hospitalization)
  Sender: FDA-Public Use
  Company Number: US-ROCHE-1617994

PATIENT
  Age: 65 Year
  Sex: Male
  Weight: 104.5 kg

DRUGS (14)
  1. ETODOLAC. [Concomitant]
     Active Substance: ETODOLAC
     Route: 065
     Dates: start: 20150601
  2. EXTINA [Concomitant]
     Active Substance: KETOCONAZOLE
     Route: 065
     Dates: start: 20150726
  3. TINACTIN [Concomitant]
     Active Substance: TOLNAFTATE
     Dosage: AEROSOL
     Route: 065
     Dates: start: 20150726
  4. ALLOPURINOL. [Concomitant]
     Active Substance: ALLOPURINOL
     Route: 065
     Dates: start: 20150724
  5. SERTRALINE HCL [Concomitant]
     Active Substance: SERTRALINE HYDROCHLORIDE
     Route: 065
     Dates: start: 2002
  6. ACYCLOVIR. [Concomitant]
     Active Substance: ACYCLOVIR
     Route: 065
     Dates: start: 20150724
  7. JANUVIA [Concomitant]
     Active Substance: SITAGLIPTIN PHOSPHATE
     Route: 065
     Dates: start: 2012
  8. DAPSONE. [Concomitant]
     Active Substance: DAPSONE
     Route: 065
     Dates: start: 20150724
  9. BENDAMUSTINE [Suspect]
     Active Substance: BENDAMUSTINE
     Indication: CHRONIC LYMPHOCYTIC LEUKAEMIA
     Dosage: DATE OF MOST RECENT DOSE (195 MG) PRIOR TO SAE: 29/JUL/2015
     Route: 042
  10. EMLA [Concomitant]
     Active Substance: LIDOCAINE\PRILOCAINE
     Dosage: FOR PORT
     Route: 065
     Dates: start: 20150724
  11. LOTRIMIN ULTRA [Concomitant]
     Active Substance: BUTENAFINE HYDROCHLORIDE
     Route: 065
     Dates: start: 20150726
  12. OBINUTUZUMAB [Suspect]
     Active Substance: OBINUTUZUMAB
     Indication: CHRONIC LYMPHOCYTIC LEUKAEMIA
     Dosage: DATE OF MOST RECENT DOSE (900 MG) PRIOR TO SAE: 28/JUL/2015
     Route: 042
  13. CLOBETASOL PROPIONATE CREAM [Concomitant]
     Active Substance: CLOBETASOL PROPIONATE
     Route: 065
     Dates: start: 20150716
  14. ECONAZOLE NITRATE. [Concomitant]
     Active Substance: ECONAZOLE NITRATE
     Route: 065
     Dates: start: 20150726

REACTIONS (1)
  - Febrile neutropenia [Recovered/Resolved]

NARRATIVE: CASE EVENT DATE: 20150803
